FAERS Safety Report 16310598 (Version 3)
Quarter: 2019Q4

REPORT INFORMATION
  Report Type: Spontaneous
  Country: US (occurrence: US)
  Receive Date: 20190514
  Receipt Date: 20191028
  Transmission Date: 20200122
  Serious: Yes (Other)
  Sender: FDA-Public Use
  Company Number: US-ASTRAZENECA-2019SE10297

PATIENT
  Age: 47 Year
  Sex: Female
  Weight: 48.5 kg

DRUGS (55)
  1. NEXIUM [Suspect]
     Active Substance: ESOMEPRAZOLE MAGNESIUM
     Indication: GASTROOESOPHAGEAL REFLUX DISEASE
     Dosage: 40.0MG UNKNOWN
     Route: 048
     Dates: start: 2012, end: 2014
  2. DEXILANT [Suspect]
     Active Substance: DEXLANSOPRAZOLE
     Indication: GASTROOESOPHAGEAL REFLUX DISEASE
     Dosage: FOR VARIOUS DATES AND YEARS PRIOR TO AND/OR INCLUDING THE DATE(S)
     Route: 065
  3. LORAZEPAM. [Concomitant]
     Active Substance: LORAZEPAM
  4. CLOPIDOGREL [Concomitant]
     Active Substance: CLOPIDOGREL BISULFATE
  5. DIAZEPAM. [Concomitant]
     Active Substance: DIAZEPAM
  6. FLUCONAZOLE. [Concomitant]
     Active Substance: FLUCONAZOLE
  7. VANCOMYCIN [Concomitant]
     Active Substance: VANCOMYCIN
  8. NEXIUM [Suspect]
     Active Substance: ESOMEPRAZOLE MAGNESIUM
     Indication: GASTROOESOPHAGEAL REFLUX DISEASE
     Dosage: FOR VARIOUS DATES AND YEARS PRIOR TO AND/OR INCLUDING THE DATE(S).
     Route: 048
  9. NEXIUM [Suspect]
     Active Substance: ESOMEPRAZOLE MAGNESIUM
     Indication: GASTROOESOPHAGEAL REFLUX DISEASE
     Dosage: 40.0MG UNKNOWN
     Route: 048
     Dates: start: 2012, end: 2014
  10. ADVAIR DISKUS [Concomitant]
     Active Substance: FLUTICASONE PROPIONATE\SALMETEROL XINAFOATE
  11. AZELASTINE. [Concomitant]
     Active Substance: AZELASTINE HYDROCHLORIDE
  12. ESTRADIOL. [Concomitant]
     Active Substance: ESTRADIOL
  13. LINZESS [Concomitant]
     Active Substance: LINACLOTIDE
  14. LORAZEPAM. [Concomitant]
     Active Substance: LORAZEPAM
  15. MISOPROSTOL. [Concomitant]
     Active Substance: MISOPROSTOL
  16. OXYCODONE [Concomitant]
     Active Substance: OXYCODONE
  17. FLUTICASONE. [Concomitant]
     Active Substance: FLUTICASONE
  18. ALPRAZOLAM. [Concomitant]
     Active Substance: ALPRAZOLAM
  19. ESCITALOPRAM [Concomitant]
     Active Substance: ESCITALOPRAM OXALATE
  20. FENTANYL. [Concomitant]
     Active Substance: FENTANYL
  21. FUROSEMIDE. [Concomitant]
     Active Substance: FUROSEMIDE
  22. HYDROXYZINE PAMOATE. [Concomitant]
     Active Substance: HYDROXYZINE PAMOATE
  23. LOPERAMIDE [Concomitant]
     Active Substance: LOPERAMIDE
  24. PROMETHAZINE [Concomitant]
     Active Substance: PROMETHAZINE HYDROCHLORIDE
  25. VENTOLIN [Concomitant]
     Active Substance: ALBUTEROL SULFATE
  26. NEXIUM [Suspect]
     Active Substance: ESOMEPRAZOLE MAGNESIUM
     Indication: GASTROOESOPHAGEAL REFLUX DISEASE
     Dosage: 40.0MG UNKNOWN
     Route: 048
     Dates: start: 2011, end: 2014
  27. SAVELLA [Concomitant]
     Active Substance: MILNACIPRAN HYDROCHLORIDE
  28. AMITIZA [Concomitant]
     Active Substance: LUBIPROSTONE
  29. BACLOFEN. [Concomitant]
     Active Substance: BACLOFEN
  30. METOCLOPRAMIDE. [Concomitant]
     Active Substance: METOCLOPRAMIDE
  31. TRAMADOL. [Concomitant]
     Active Substance: TRAMADOL
  32. DEXILANT [Suspect]
     Active Substance: DEXLANSOPRAZOLE
     Indication: GASTROOESOPHAGEAL REFLUX DISEASE
     Dosage: 60.0MG UNKNOWN
     Route: 065
     Dates: start: 2013, end: 2015
  33. DEXILANT [Suspect]
     Active Substance: DEXLANSOPRAZOLE
     Indication: GASTROOESOPHAGEAL REFLUX DISEASE
     Dosage: 60.0MG UNKNOWN
     Route: 065
     Dates: start: 2013, end: 2015
  34. CETIRIZINE [Concomitant]
     Active Substance: CETIRIZINE HYDROCHLORIDE
  35. METRONIDAZOLE. [Concomitant]
     Active Substance: METRONIDAZOLE
  36. MOMETASONE [Concomitant]
     Active Substance: MOMETASONE
  37. NYSTATIN. [Concomitant]
     Active Substance: NYSTATIN
  38. DEXILANT [Suspect]
     Active Substance: DEXLANSOPRAZOLE
     Indication: GASTROOESOPHAGEAL REFLUX DISEASE
     Dosage: 60.0MG UNKNOWN
     Route: 065
     Dates: start: 2013, end: 2018
  39. DEXILANT [Suspect]
     Active Substance: DEXLANSOPRAZOLE
     Indication: GASTROOESOPHAGEAL REFLUX DISEASE
     Dosage: 60.0MG UNKNOWN
     Route: 065
     Dates: start: 2013, end: 2018
  40. LYRICA [Concomitant]
     Active Substance: PREGABALIN
  41. LEVOFLOXACIN. [Concomitant]
     Active Substance: LEVOFLOXACIN
  42. MONTELUKAST [Concomitant]
     Active Substance: MONTELUKAST SODIUM
  43. LEVOFLOXACIN. [Concomitant]
     Active Substance: LEVOFLOXACIN
  44. ERYTHROMYCIN. [Concomitant]
     Active Substance: ERYTHROMYCIN
  45. IBUPROFEN. [Concomitant]
     Active Substance: IBUPROFEN
  46. MIDODRINE [Concomitant]
     Active Substance: MIDODRINE
  47. ONDANSETRON [Concomitant]
     Active Substance: ONDANSETRON
  48. PRIMIDONE. [Concomitant]
     Active Substance: PRIMIDONE
  49. SERTRALINE [Concomitant]
     Active Substance: SERTRALINE HYDROCHLORIDE
  50. TAMSULOSIN [Concomitant]
     Active Substance: TAMSULOSIN
  51. NEXIUM [Suspect]
     Active Substance: ESOMEPRAZOLE MAGNESIUM
     Indication: GASTROOESOPHAGEAL REFLUX DISEASE
     Dosage: FOR VARIOUS DATES AND YEARS PRIOR TO AND/OR INCLUDING THE DATE(S).
     Route: 048
  52. NEXIUM [Suspect]
     Active Substance: ESOMEPRAZOLE MAGNESIUM
     Indication: GASTROOESOPHAGEAL REFLUX DISEASE
     Dosage: 40.0MG UNKNOWN
     Route: 048
     Dates: start: 2011, end: 2014
  53. DEXILANT [Suspect]
     Active Substance: DEXLANSOPRAZOLE
     Indication: GASTROOESOPHAGEAL REFLUX DISEASE
     Dosage: FOR VARIOUS DATES AND YEARS PRIOR TO AND/OR INCLUDING THE DATE(S)
     Route: 065
  54. CIPROFLOXACIN. [Concomitant]
     Active Substance: CIPROFLOXACIN
  55. INDOMETACIN [Concomitant]
     Active Substance: INDOMETHACIN

REACTIONS (5)
  - Renal failure [Unknown]
  - Renal tubular necrosis [Not Recovered/Not Resolved]
  - Rebound acid hypersecretion [Unknown]
  - Chronic kidney disease [Not Recovered/Not Resolved]
  - Acute kidney injury [Not Recovered/Not Resolved]

NARRATIVE: CASE EVENT DATE: 2013
